FAERS Safety Report 7861458-9 (Version None)
Quarter: 2011Q4

REPORT INFORMATION
  Report Type: 
  Country: None (occurrence: None)
  Receive Date: 20111027
  Receipt Date: 20111018
  Transmission Date: 20120403
  Serious: Yes (Other)
  Sender: FDA-Public Use
  Company Number: US-JNJFOC-20110808178

PATIENT
  Age: 69 Year
  Sex: Male

DRUGS (5)
  1. STELARA [Suspect]
     Indication: PSORIASIS
     Route: 058
  2. STELARA [Suspect]
     Route: 058
     Dates: start: 20110101
  3. LOSARTAN POTASSIUM [Concomitant]
     Indication: HYPERTENSION
  4. STELARA [Suspect]
     Route: 058
     Dates: start: 20110608
  5. AMLODIPINE BESYLATE [Concomitant]
     Indication: HYPERTENSION

REACTIONS (1)
  - NEUTROPENIA [None]
